FAERS Safety Report 9465034 (Version 4)
Quarter: 2014Q2

REPORT INFORMATION
  Report Type: Spontaneous
  Country: US (occurrence: US)
  Receive Date: 20130819
  Receipt Date: 20140414
  Transmission Date: 20141212
  Serious: Yes (Disabling, Other)
  Sender: FDA-Public Use
  Company Number: US-009507513-1107USA03831

PATIENT
  Sex: Female
  Weight: 53.7 kg

DRUGS (7)
  1. FOSAMAX [Suspect]
     Indication: OSTEOPOROSIS
     Dosage: 70 MG, QW
     Route: 048
     Dates: start: 20031219, end: 20080107
  2. FOSAMAX [Suspect]
     Indication: OSTEOPOROSIS PROPHYLAXIS
  3. ALENDRONATE SODIUM [Suspect]
     Indication: OSTEOPOROSIS
     Dosage: 70 MG, QW
     Route: 048
     Dates: start: 20080305, end: 20110301
  4. ALENDRONATE SODIUM [Suspect]
     Indication: OSTEOPOROSIS PROPHYLAXIS
  5. LASIX (FUROSEMIDE SODIUM) [Concomitant]
     Indication: NEPHROPATHY
     Dates: start: 1994
  6. MS CONTIN [Concomitant]
     Indication: PAIN
     Dates: start: 1994
  7. ACTONEL [Suspect]
     Indication: OSTEOPOROSIS
     Dosage: 35 MG, UNK
     Route: 048
     Dates: start: 200306, end: 20031219

REACTIONS (23)
  - Hypersensitivity [Unknown]
  - Osteonecrosis of jaw [Not Recovered/Not Resolved]
  - Dermal cyst [Unknown]
  - Tenosynovitis stenosans [Unknown]
  - Depression [Unknown]
  - Stress at work [Unknown]
  - Hypothyroidism [Unknown]
  - Basedow^s disease [Unknown]
  - Hyperlipidaemia [Unknown]
  - Dyspnoea [Unknown]
  - Dental caries [Unknown]
  - Somnolence [Unknown]
  - Urinary tract infection [Unknown]
  - Tooth disorder [Unknown]
  - Bronchopneumonia [Unknown]
  - Gingival pain [Unknown]
  - Tooth fracture [Unknown]
  - Jaw disorder [Unknown]
  - Insomnia [Unknown]
  - Stomatitis [Unknown]
  - Swelling face [Unknown]
  - Abdominal pain [Unknown]
  - Constipation [Unknown]
